FAERS Safety Report 12218914 (Version 1)
Quarter: 2016Q1

REPORT INFORMATION
  Report Type: Spontaneous
  Country: ES (occurrence: ES)
  Receive Date: 20160329
  Receipt Date: 20160329
  Transmission Date: 20160526
  Serious: Yes (Life-Threatening, Other)
  Sender: FDA-Public Use
  Company Number: ES-TEVA-647342ISR

PATIENT
  Age: 74 Year
  Sex: Female

DRUGS (13)
  1. OMEPRAZOLE. [Concomitant]
     Active Substance: OMEPRAZOLE
  2. ALPRAZOLAM. [Concomitant]
     Active Substance: ALPRAZOLAM
  3. BISOPROLOL [Concomitant]
     Active Substance: BISOPROLOL
  4. PARACETAMOL [Concomitant]
     Active Substance: ACETAMINOPHEN
  5. INDAPAMIDE. [Suspect]
     Active Substance: INDAPAMIDE
  6. RISEDRONIC ACID [Concomitant]
     Active Substance: RISEDRONIC ACID
  7. PAROXETINE [Suspect]
     Active Substance: PAROXETINE\PAROXETINE HYDROCHLORIDE
  8. ACENOCOUMAROL [Concomitant]
     Active Substance: ACENOCOUMAROL
  9. TRAMADOL. [Concomitant]
     Active Substance: TRAMADOL
  10. METOCLOPRAMIDE. [Suspect]
     Active Substance: METOCLOPRAMIDE
  11. SULPIRIDE [Suspect]
     Active Substance: SULPIRIDE
  12. AMIODARONE [Suspect]
     Active Substance: AMIODARONE
     Route: 042
  13. SIMVASTATIN. [Concomitant]
     Active Substance: SIMVASTATIN

REACTIONS (7)
  - Electrocardiogram QT prolonged [Recovered/Resolved]
  - Hypomagnesaemia [Recovered/Resolved]
  - Hypokalaemia [Recovered/Resolved]
  - Cardio-respiratory arrest [Recovered/Resolved]
  - Torsade de pointes [Recovered/Resolved]
  - Ventricular fibrillation [Recovered/Resolved]
  - Hypocalcaemia [Recovered/Resolved]
